FAERS Safety Report 6935052-8 (Version None)
Quarter: 2010Q3

REPORT INFORMATION
  Report Type: 
  Country: None (occurrence: None)
  Receive Date: 20100822
  Receipt Date: 20100810
  Transmission Date: 20110219
  Serious: Yes (Other)
  Sender: FDA-Public Use
  Company Number: PHFR2010GB02026

PATIENT
  Sex: Female

DRUGS (2)
  1. CLOZARIL [Suspect]
     Indication: SCHIZOPHRENIA
     Dosage: 300 MG
     Route: 048
     Dates: start: 20090910
  2. CLOZARIL [Suspect]
     Dosage: 250 MG, QD
     Route: 048

REACTIONS (2)
  - CONFUSIONAL STATE [None]
  - DISORIENTATION [None]
